FAERS Safety Report 5481393-3 (Version None)
Quarter: 2007Q4

REPORT INFORMATION
  Report Type: 
  Country: None (occurrence: None)
  Receive Date: 20071005
  Receipt Date: 20071005
  Transmission Date: 20080405
  Serious: No
  Sender: FDA-Public Use
  Company Number: None

PATIENT
  Age: 23 Year
  Sex: Female
  Weight: 63.5036 kg

DRUGS (1)
  1. ORTHO TRI-CYCLEN [Suspect]
     Dosage: DAILY PO
     Route: 048
     Dates: start: 19970101, end: 20060101

REACTIONS (2)
  - OEDEMA PERIPHERAL [None]
  - PRURITUS [None]
